FAERS Safety Report 6240743-0 (Version None)
Quarter: 2009Q2

REPORT INFORMATION
  Report Type: 
  Country: None (occurrence: None)
  Receive Date: 20090623
  Receipt Date: 20090610
  Transmission Date: 20091009
  Serious: Yes (Hospitalization)
  Sender: FDA-Public Use
  Company Number: ES-ELI_LILLY_AND_COMPANY-ES200906003512

PATIENT
  Age: 74 Year
  Sex: Female

DRUGS (8)
  1. FORTEO [Suspect]
     Indication: OSTEOPOROSIS
     Dosage: 20 UG, UNK
     Route: 058
     Dates: start: 20090209
  2. OMEPRAZOL [Concomitant]
     Indication: GASTRIC DISORDER
  3. TRAMADOL HCL [Concomitant]
     Indication: PAIN
  4. METFORMIN HCL [Concomitant]
     Indication: DIABETES MELLITUS
  5. ORFIDAL [Concomitant]
     Indication: INSOMNIA
  6. CIPRALEX [Concomitant]
  7. ADIRO [Concomitant]
  8. BUSCAPINA [Concomitant]

REACTIONS (2)
  - ABDOMINAL PAIN UPPER [None]
  - VOMITING [None]
